FAERS Safety Report 7679556-1 (Version None)
Quarter: 2011Q3

REPORT INFORMATION
  Report Type: 
  Country: None (occurrence: None)
  Receive Date: 20110812
  Receipt Date: 20110808
  Transmission Date: 20111222
  Serious: Yes (Hospitalization)
  Sender: FDA-Public Use
  Company Number: US-BRISTOL-MYERS SQUIBB COMPANY-15957756

PATIENT
  Age: 83 Year
  Sex: Female

DRUGS (5)
  1. BLINDED: SAXAGLIPTIN [Suspect]
     Indication: TYPE 2 DIABETES MELLITUS
  2. PLAVIX [Suspect]
  3. ASPIRIN [Suspect]
  4. COUMADIN [Suspect]
  5. PLACEBO [Suspect]
     Indication: TYPE 2 DIABETES MELLITUS

REACTIONS (2)
  - VASODILATATION [None]
  - RECTAL HAEMORRHAGE [None]
